FAERS Safety Report 16217345 (Version 1)
Quarter: 2019Q2

REPORT INFORMATION
  Report Type: Spontaneous
  Country: GB (occurrence: GB)
  Receive Date: 20190419
  Receipt Date: 20190419
  Transmission Date: 20190711
  Serious: Yes (Other)
  Sender: FDA-Public Use
  Company Number: GB-TEVA-2019-GB-1038857

PATIENT
  Age: 35 Year
  Sex: Female
  Weight: 80 kg

DRUGS (6)
  1. AMOXICILLIN. [Concomitant]
     Active Substance: AMOXICILLIN
     Indication: EAR INFECTION
  2. PARACETAMOL [Concomitant]
     Active Substance: ACETAMINOPHEN
  3. PAROXETINE HYDROCHLORIDE. [Concomitant]
     Active Substance: PAROXETINE HYDROCHLORIDE
     Dosage: 7.5 MILLIGRAM DAILY;
  4. OTOMIZE [Concomitant]
     Active Substance: DEXAMETHASONE\NEOMYCIN SULFATE
  5. IBUPROFEN. [Concomitant]
     Active Substance: IBUPROFEN
  6. METRONIDAZOLE. [Suspect]
     Active Substance: METRONIDAZOLE
     Indication: PERICORONITIS
     Dosage: 1200 MILLIGRAM DAILY;
     Route: 048
     Dates: start: 20190312, end: 20190316

REACTIONS (2)
  - Memory impairment [Unknown]
  - Confusional state [Recovering/Resolving]

NARRATIVE: CASE EVENT DATE: 20190312
